FAERS Safety Report 5864887-8 (Version None)
Quarter: 2008Q3

REPORT INFORMATION
  Report Type: 
  Country: None (occurrence: None)
  Receive Date: 20080829
  Receipt Date: 20080723
  Transmission Date: 20090109
  Serious: No
  Sender: FDA-Public Use
  Company Number: US-ABBOTT-08P-163-0464721-00

PATIENT
  Sex: Female
  Weight: 45.4 kg

DRUGS (1)
  1. SIMCOR [Suspect]
     Indication: BLOOD CHOLESTEROL INCREASED
     Dosage: 500/20 MG AT NIGHT
     Route: 048
     Dates: start: 20080718

REACTIONS (1)
  - PRURITUS [None]
